FAERS Safety Report 21919765 (Version 1)
Quarter: 2023Q1

REPORT INFORMATION
  Report Type: Spontaneous
  Country: JP (occurrence: JP)
  Receive Date: 20230127
  Receipt Date: 20230127
  Transmission Date: 20230417
  Serious: Yes (Other)
  Sender: FDA-Public Use
  Company Number: JP-MYLANLABS-2023M1006336

PATIENT
  Age: 8 Decade
  Sex: Male

DRUGS (4)
  1. SOLANAX [Suspect]
     Active Substance: ALPRAZOLAM
     Indication: Sleep disorder
     Dosage: 3 DOSAGE FORM, DAILY
     Route: 048
     Dates: start: 20120925
  2. ALPRAZOLAM [Suspect]
     Active Substance: ALPRAZOLAM
     Indication: Product used for unknown indication
     Dosage: UNK
     Route: 048
  3. ALLEGRA [Suspect]
     Active Substance: FEXOFENADINE HYDROCHLORIDE
     Indication: Rhinitis
     Dosage: UNK
     Route: 048
  4. URDENACIN [Concomitant]
     Indication: Liver disorder
     Route: 065

REACTIONS (3)
  - Neuropathy peripheral [Not Recovered/Not Resolved]
  - Varicose vein [Unknown]
  - Gait disturbance [Not Recovered/Not Resolved]
